FAERS Safety Report 10039471 (Version 2)
Quarter: 2014Q1

REPORT INFORMATION
  Report Type: Spontaneous
  Country: US (occurrence: US)
  Receive Date: 20140326
  Receipt Date: 20140326
  Transmission Date: 20141002
  Serious: Yes (Other)
  Sender: FDA-Public Use
  Company Number: US-JNJFOC-20140105146

PATIENT
  Sex: Male
  Weight: 88.45 kg

DRUGS (3)
  1. REMICADE [Suspect]
     Indication: CROHN^S DISEASE
     Route: 042
     Dates: start: 20130128, end: 20131028
  2. ALEVE [Concomitant]
     Route: 065
  3. ASPIRIN [Concomitant]
     Route: 065

REACTIONS (5)
  - Demyelinating polyneuropathy [Recovering/Resolving]
  - Ulnar nerve injury [Recovering/Resolving]
  - Cubital tunnel syndrome [Unknown]
  - Arthritis [Unknown]
  - Antinuclear antibody positive [Unknown]
